FAERS Safety Report 14276836 (Version 2)
Quarter: 2018Q2

REPORT INFORMATION
  Report Type: Spontaneous
  Country: FR (occurrence: FR)
  Receive Date: 20171211
  Receipt Date: 20180416
  Transmission Date: 20180711
  Serious: Yes (Hospitalization)
  Sender: FDA-Public Use
  Company Number: FR-OTSUKA-2015_015117

PATIENT
  Age: 27 Year
  Sex: Male

DRUGS (5)
  1. DEPAKOTE [Suspect]
     Active Substance: DIVALPROEX SODIUM
     Indication: BIPOLAR DISORDER
     Dosage: 250 MG, BID (500 MG)
     Route: 048
  2. ABILIFY [Suspect]
     Active Substance: ARIPIPRAZOLE
     Indication: MANIA
     Dosage: 15 MG, QD
     Route: 048
     Dates: start: 20151102, end: 20151102
  3. LOXAPAC [Suspect]
     Active Substance: LOXAPINE
     Indication: MANIA
     Dosage: 100 MG, QD
     Route: 048
     Dates: start: 20151102, end: 20151102
  4. RISPERDAL [Suspect]
     Active Substance: RISPERIDONE
     Indication: BIPOLAR DISORDER
     Dosage: 1 MG, QD
     Route: 048
     Dates: end: 20151102
  5. NOZINAN [Suspect]
     Active Substance: LEVOMEPROMAZINE
     Indication: MANIA
     Dosage: 1 DF, QID
     Route: 048
     Dates: start: 20151102, end: 20151102

REACTIONS (2)
  - Hyperthermia [Unknown]
  - Extrapyramidal disorder [Unknown]

NARRATIVE: CASE EVENT DATE: 20151102
